FAERS Safety Report 4374687-6 (Version None)
Quarter: 2004Q2

REPORT INFORMATION
  Report Type: 
  Country: None (occurrence: None)
  Receive Date: 20040604
  Receipt Date: 20040524
  Transmission Date: 20050107
  Serious: Yes (Hospitalization)
  Sender: FDA-Public Use
  Company Number: 2004033269

PATIENT
  Age: 26 Year
  Sex: Male

DRUGS (1)
  1. DIPHENHYDRAMINE HCL [Suspect]
     Indication: SUICIDE ATTEMPT
     Dosage: 2500MG ONCE, ORAL
     Route: 048

REACTIONS (15)
  - ARRHYTHMIA [None]
  - ASPIRATION [None]
  - BLOOD BICARBONATE DECREASED [None]
  - BLOOD MAGNESIUM INCREASED [None]
  - BLOOD PH DECREASED [None]
  - BLOOD POTASSIUM DECREASED [None]
  - BODY TEMPERATURE INCREASED [None]
  - CARDIAC ARREST [None]
  - COMA [None]
  - CONVULSION [None]
  - OVERDOSE [None]
  - PO2 INCREASED [None]
  - SOMNOLENCE [None]
  - SUICIDE ATTEMPT [None]
  - VENTRICULAR TACHYCARDIA [None]
